FAERS Safety Report 23621029 (Version 3)
Quarter: 2024Q1

REPORT INFORMATION
  Report Type: Report from Study
  Country: DE (occurrence: DE)
  Receive Date: 20240312
  Receipt Date: 20240328
  Transmission Date: 20240409
  Serious: Yes (Hospitalization, Other)
  Sender: FDA-Public Use
  Company Number: DE-002147023-NVSC2024DE050926

PATIENT
  Age: 7 Year
  Sex: Female
  Weight: 32 kg

DRUGS (2)
  1. ILARIS [Suspect]
     Active Substance: CANAKINUMAB
     Indication: Muckle-Wells syndrome
     Dosage: 120 MG
     Route: 058
     Dates: start: 20180109
  2. ILARIS [Suspect]
     Active Substance: CANAKINUMAB
     Dosage: 120 MG
     Route: 058
     Dates: start: 20230921

REACTIONS (3)
  - Anorexia nervosa [Not Recovered/Not Resolved]
  - Gastritis [Unknown]
  - Constipation [Unknown]

NARRATIVE: CASE EVENT DATE: 20231011
